FAERS Safety Report 21919080 (Version 1)
Quarter: 2023Q1

REPORT INFORMATION
  Report Type: Spontaneous
  Country: GB (occurrence: GB)
  Receive Date: 20230127
  Receipt Date: 20230127
  Transmission Date: 20230418
  Serious: Yes (Life-Threatening)
  Sender: FDA-Public Use
  Company Number: GB-TEVA-2023-GB-2849701

PATIENT
  Age: 82 Year
  Sex: Female

DRUGS (15)
  1. ESTRADIOL [Suspect]
     Active Substance: ESTRADIOL
     Indication: Product used for unknown indication
     Route: 065
  2. DOXAZOSIN 245 [Concomitant]
     Indication: Product used for unknown indication
     Dosage: 2 MILLIGRAM DAILY; EACH EVENING
     Dates: start: 20220701
  3. AMOXICILLIN [Concomitant]
     Active Substance: AMOXICILLIN
     Indication: Product used for unknown indication
     Dosage: 1500 MILLIGRAM DAILY;
     Dates: start: 20220701
  4. ASPIRIN [Concomitant]
     Active Substance: ASPIRIN
     Indication: Product used for unknown indication
  5. BISOPROLOL 245 [Concomitant]
     Indication: Product used for unknown indication
     Dosage: 1.25 MILLIGRAM DAILY;
     Dates: start: 20220701
  6. EDOXABAN 245 [Concomitant]
     Indication: Product used for unknown indication
     Dosage: 60 MILLIGRAM DAILY;
     Dates: start: 20220701
  7. OMEPRAZOLE 90 [Concomitant]
     Indication: Product used for unknown indication
     Dosage: 20 MILLIGRAM DAILY; EACH MORNING ON AN EMPTY STOMACH IF NEEDED
  8. PARACETAMOL AND DIHYDROCODEINE [Concomitant]
     Indication: Product used for unknown indication
  9. PARACETAMOL 245 [Concomitant]
     Indication: Pain
     Dosage: 500 MILLIGRAM ONE OR TWO TO BE TAKEN UP TO FOUR TIMES A DAY
     Dates: start: 20220701
  10. PHOLCODINE [Concomitant]
     Active Substance: PHOLCODINE
     Indication: Product used for unknown indication
     Dosage: 5 MILLILITRE 10MG/5ML ONE 5ML SPOONFUL NOCTE /2.5MLS UP TO 3X A DAY DURING DAYTIME
     Dates: start: 20220701
  11. ROSUVASTATIN 245 [Concomitant]
     Indication: Product used for unknown indication
     Dosage: EACH NIGHT
     Dates: start: 20220701
  12. TRAMADOL [Concomitant]
     Active Substance: TRAMADOL
     Indication: Product used for unknown indication
  13. VAGIFEM 265 [Concomitant]
     Indication: Product used for unknown indication
  14. GAVISCON ADVANCE 8 [Concomitant]
     Indication: Product used for unknown indication
     Dosage: ONE OR TWO TO BE CHEWED AFTER MEALS AND AT BEDTIME
  15. CO-AMILOZIDE 245 [Concomitant]
     Indication: Product used for unknown indication
     Dosage: 1 DOSAGE FORMS DAILY; 2.5MG/25MG EACH MORNING
     Dates: start: 20220701

REACTIONS (2)
  - Ischaemic stroke [Unknown]
  - Vertebrobasilar insufficiency [Unknown]
